FAERS Safety Report 7057446-5 (Version None)
Quarter: 2010Q4

REPORT INFORMATION
  Report Type: 
  Country: None (occurrence: None)
  Receive Date: 20101022
  Receipt Date: 20101008
  Transmission Date: 20110411
  Serious: Yes (Hospitalization, Other)
  Sender: FDA-Public Use
  Company Number: PHHY2009CA37699

PATIENT
  Sex: Male

DRUGS (2)
  1. SANDOSTATIN LAR [Suspect]
     Indication: NEUROENDOCRINE CARCINOMA
     Dosage: 30 MG, QMO
     Dates: start: 20091003, end: 20100608
  2. OCTREOTIDE ACETATE [Suspect]
     Dosage: UNK
     Route: 058
     Dates: start: 20090807

REACTIONS (16)
  - ABDOMINAL PAIN UPPER [None]
  - ANKLE FRACTURE [None]
  - BLOOD PRESSURE INCREASED [None]
  - CHILLS [None]
  - CONFUSIONAL STATE [None]
  - CONTUSION [None]
  - FALL [None]
  - GAIT DISTURBANCE [None]
  - GAIT SPASTIC [None]
  - HYPERHIDROSIS [None]
  - MALAISE [None]
  - PRODUCTIVE COUGH [None]
  - PYREXIA [None]
  - TACHYCARDIA [None]
  - TREATMENT NONCOMPLIANCE [None]
  - URINARY INCONTINENCE [None]
